FAERS Safety Report 4748979-2 (Version None)
Quarter: 2005Q3

REPORT INFORMATION
  Report Type: 
  Country: None (occurrence: None)
  Receive Date: 20050817
  Receipt Date: 20050805
  Transmission Date: 20060218
  Serious: Yes (Other)
  Sender: FDA-Public Use
  Company Number: 2005106690

PATIENT

DRUGS (2)
  1. DOXAZOSIN MESYLATE [Suspect]
     Indication: ILL-DEFINED DISORDER
     Dosage: ORAL
     Route: 048
  2. FERROMIA (FERROUS CITRATE) [Concomitant]

REACTIONS (1)
  - BLOOD POTASSIUM INCREASED [None]
